FAERS Safety Report 6624946-9 (Version None)
Quarter: 2010Q1

REPORT INFORMATION
  Report Type: 
  Country: None (occurrence: None)
  Receive Date: 20100310
  Receipt Date: 20090915
  Transmission Date: 20100710
  Serious: No
  Sender: FDA-Public Use
  Company Number: US-BIOGENIDEC-2009BI029800

PATIENT
  Sex: Female

DRUGS (2)
  1. AVONEX [Suspect]
     Indication: MULTIPLE SCLEROSIS
     Route: 030
     Dates: start: 19960701, end: 20070101
  2. AVONEX [Suspect]
     Route: 030
     Dates: start: 20090802

REACTIONS (14)
  - ALTERED VISUAL DEPTH PERCEPTION [None]
  - COLOUR BLINDNESS ACQUIRED [None]
  - COORDINATION ABNORMAL [None]
  - DIPLOPIA [None]
  - FATIGUE [None]
  - INFLUENZA LIKE ILLNESS [None]
  - INSOMNIA [None]
  - LETHARGY [None]
  - MIGRAINE [None]
  - MULTIPLE SCLEROSIS [None]
  - MUSCLE SPASMS [None]
  - MYALGIA [None]
  - NIGHT BLINDNESS [None]
  - SPINAL COLUMN STENOSIS [None]
